FAERS Safety Report 19235593 (Version 1)
Quarter: 2021Q2

REPORT INFORMATION
  Report Type: Spontaneous
  Country: US (occurrence: US)
  Receive Date: 20210510
  Receipt Date: 20210510
  Transmission Date: 20210717
  Serious: Yes (Hospitalization, Other)
  Sender: FDA-Public Use
  Company Number: US-CIPLA LTD.-2021US03363

PATIENT

DRUGS (2)
  1. VINCRISTINE [Suspect]
     Active Substance: VINCRISTINE
     Indication: OPTIC GLIOMA
     Dosage: 1.5MG/M2/DOSE, 6 CYCLES
     Route: 065
  2. CARBOPLATIN. [Suspect]
     Active Substance: CARBOPLATIN
     Indication: OPTIC GLIOMA
     Dosage: 175 MG/M2/DOSE, 6 CYCLES
     Route: 065

REACTIONS (2)
  - Haemolytic anaemia [Recovering/Resolving]
  - Shock [Unknown]
